FAERS Safety Report 9585656 (Version 3)
Quarter: 2014Q1

REPORT INFORMATION
  Report Type: Spontaneous
  Country: US (occurrence: US)
  Receive Date: 20131003
  Receipt Date: 20140321
  Transmission Date: 20141002
  Serious: No
  Sender: FDA-Public Use
  Company Number: US-BIOGENIDEC-2013BI094775

PATIENT
  Age: 56 Year
  Sex: Female

DRUGS (1)
  1. TYSABRI [Suspect]
     Indication: MULTIPLE SCLEROSIS
     Route: 042
     Dates: start: 20120831, end: 20130807

REACTIONS (23)
  - Tooth extraction [Recovered/Resolved]
  - Irritable bowel syndrome [Recovered/Resolved]
  - Vertigo [Recovered/Resolved]
  - Vitreous floaters [Recovered/Resolved]
  - Cataract [Recovered/Resolved]
  - Neuropathy peripheral [Recovered/Resolved]
  - Muscle spasms [Not Recovered/Not Resolved]
  - Sensory disturbance [Recovered/Resolved]
  - Laceration [Recovered/Resolved]
  - Mass [Not Recovered/Not Resolved]
  - Contusion [Recovered/Resolved]
  - Periorbital contusion [Not Recovered/Not Resolved]
  - Concussion [Not Recovered/Not Resolved]
  - Road traffic accident [Recovered/Resolved]
  - Haemorrhage [Recovered/Resolved]
  - Anaemia [Recovered/Resolved]
  - Musculoskeletal disorder [Not Recovered/Not Resolved]
  - Diarrhoea [Unknown]
  - Hypoaesthesia [Not Recovered/Not Resolved]
  - Multiple sclerosis relapse [Recovered/Resolved]
  - Headache [Recovered/Resolved]
  - Fatigue [Not Recovered/Not Resolved]
  - Dizziness [Recovered/Resolved]
